FAERS Safety Report 6162266-X (Version None)
Quarter: 2009Q2

REPORT INFORMATION
  Report Type: 
  Country: None (occurrence: None)
  Receive Date: 20090417
  Receipt Date: 20090402
  Transmission Date: 20091009
  Serious: Yes (Life-Threatening, Hospitalization)
  Sender: FDA-Public Use
  Company Number: 2009AL002164

PATIENT
  Age: 78 Year
  Sex: Female

DRUGS (7)
  1. DICLOFENAC SODIUM DELAYED-RELEASE TABLETS, 75 MG (PUREPAC) (DICLOFENAC [Suspect]
     Indication: PATELLA FRACTURE
     Dosage: 75 MG; BID; PO
     Route: 048
     Dates: start: 20070101, end: 20080923
  2. ACETYLSALICYLIC ACID SRT [Concomitant]
  3. CANDESARTAN CILEXETIL [Concomitant]
  4. BISOPROLOL FUMARATE [Concomitant]
  5. SIMVASTATIN [Concomitant]
  6. INSULIN HUMAN [Concomitant]
  7. INSULIN PROTAPHAN HUMAN [Concomitant]

REACTIONS (6)
  - BLOOD GLUCOSE INCREASED [None]
  - DIZZINESS [None]
  - FALL [None]
  - GASTRIC ULCER HAEMORRHAGE [None]
  - LOSS OF CONSCIOUSNESS [None]
  - SYNCOPE [None]
